FAERS Safety Report 11142006 (Version 2)
Quarter: 2015Q2

REPORT INFORMATION
  Report Type: Spontaneous
  Country: FR (occurrence: FR)
  Receive Date: 20150527
  Receipt Date: 20150608
  Transmission Date: 20150821
  Serious: Yes (Hospitalization)
  Sender: FDA-Public Use
  Company Number: FR-PFIZER INC-2015172584

PATIENT
  Age: 68 Year
  Sex: Female

DRUGS (8)
  1. DEXAMETHASONE. [Concomitant]
     Active Substance: DEXAMETHASONE
     Indication: ANAESTHESIA
     Dosage: UNK
     Dates: start: 20150402
  2. TOPALGIC [Concomitant]
     Active Substance: TRAMADOL
     Indication: POSTOPERATIVE ANALGESIA
     Dosage: 50 MG, UNK
     Dates: start: 20150402
  3. MORPHINE [Concomitant]
     Active Substance: MORPHINE
     Indication: POSTOPERATIVE ANALGESIA
     Dosage: 5 MG, UNK
     Dates: start: 20150402
  4. LYRICA [Suspect]
     Active Substance: PREGABALIN
     Indication: ANAESTHETIC PREMEDICATION
     Dosage: 300 MG, SINGLE
     Route: 048
     Dates: start: 20150402, end: 20150402
  5. SEVORANE [Concomitant]
     Active Substance: SEVOFLURANE
     Indication: ANAESTHESIA
     Dosage: UNK
     Dates: start: 20150402
  6. HYPNOVEL [Concomitant]
     Active Substance: MIDAZOLAM\MIDAZOLAM HYDROCHLORIDE
     Indication: ANAESTHESIA
     Dosage: UNK
     Dates: start: 20150402
  7. SUFENTA [Concomitant]
     Active Substance: SUFENTANIL CITRATE
     Indication: ANAESTHESIA
     Dosage: UNK
     Dates: start: 20150402
  8. DIPRIVAN [Concomitant]
     Active Substance: PROPOFOL
     Indication: ANAESTHESIA
     Dosage: UNK
     Dates: start: 20150402

REACTIONS (2)
  - Product use issue [Unknown]
  - Delayed recovery from anaesthesia [Recovered/Resolved]

NARRATIVE: CASE EVENT DATE: 20150402
